FAERS Safety Report 5252612-3 (Version None)
Quarter: 2007Q1

REPORT INFORMATION
  Report Type: 
  Country: None (occurrence: None)
  Receive Date: 20070301
  Receipt Date: 20070220
  Transmission Date: 20070707
  Serious: Yes (Hospitalization)
  Sender: FDA-Public Use
  Company Number: US-JNJFOC-20070205101

PATIENT
  Sex: Female
  Weight: 53.52 kg

DRUGS (6)
  1. DURAGESIC [Suspect]
     Route: 062
  2. DURAGESIC [Suspect]
     Indication: PAIN
     Route: 062
  3. MAGNESIUM SULFATE [Suspect]
     Indication: PREMATURE LABOUR
     Route: 065
  4. MORPHINE [Concomitant]
     Indication: BREAKTHROUGH PAIN
     Route: 065
  5. PROZAC [Concomitant]
     Route: 048
  6. KLONOPIN [Concomitant]
     Route: 048

REACTIONS (4)
  - DRUG EXPOSURE DURING PREGNANCY [None]
  - LOSS OF CONSCIOUSNESS [None]
  - PREMATURE LABOUR [None]
  - RESPIRATORY DISTRESS [None]
